FAERS Safety Report 10288275 (Version 1)
Quarter: 2014Q3

REPORT INFORMATION
  Report Type: Spontaneous
  Country: US (occurrence: US)
  Receive Date: 20140709
  Receipt Date: 20140709
  Transmission Date: 20150326
  Serious: No
  Sender: FDA-Public Use
  Company Number: US-TEVA-491445USA

PATIENT
  Age: 60 Year
  Sex: Female
  Weight: 77.18 kg

DRUGS (3)
  1. PROAIR HFA [Suspect]
     Active Substance: ALBUTEROL SULFATE
     Indication: ASTHMA
     Dosage: ONE TO TWO INHALATIONS EVERY FOUR TO SIX HOURS
     Route: 055
  2. ALBUTEROL. [Suspect]
     Active Substance: ALBUTEROL
     Route: 055
  3. LEMMON BALM [Concomitant]
     Indication: SUPPLEMENTATION THERAPY

REACTIONS (2)
  - Dizziness [Not Recovered/Not Resolved]
  - Fall [Not Recovered/Not Resolved]
